FAERS Safety Report 19902103 (Version 4)
Quarter: 2022Q4

REPORT INFORMATION
  Report Type: Spontaneous
  Country: CA (occurrence: CA)
  Receive Date: 20210930
  Receipt Date: 20221107
  Transmission Date: 20230113
  Serious: Yes (Other)
  Sender: FDA-Public Use
  Company Number: CA-SAMSUNG BIOEPIS-SB-2021-22727

PATIENT
  Age: 49 Year
  Sex: Male
  Weight: 74 kg

DRUGS (3)
  1. INFLIXIMAB [Suspect]
     Active Substance: INFLIXIMAB
     Indication: Colitis ulcerative
     Route: 042
  2. PREDNISONE [Concomitant]
     Active Substance: PREDNISONE
     Indication: Product used for unknown indication
     Route: 065
  3. PREDNISONE [Concomitant]
     Active Substance: PREDNISONE
     Route: 065

REACTIONS (25)
  - Abnormal behaviour [Recovered/Resolved]
  - Anaemia [Recovered/Resolved]
  - Arthralgia [Recovered/Resolved]
  - Condition aggravated [Recovered/Resolved]
  - Dizziness [Recovered/Resolved]
  - Fatigue [Recovered/Resolved]
  - Insomnia [Recovered/Resolved]
  - Pallor [Recovered/Resolved]
  - Polyp [Recovered/Resolved]
  - Pyrexia [Recovered/Resolved]
  - Heart rate increased [Recovered/Resolved]
  - Mean cell haemoglobin concentration increased [Recovered/Resolved]
  - Neutrophil count decreased [Recovered/Resolved]
  - Weight fluctuation [Recovered/Resolved]
  - C-reactive protein increased [Recovered/Resolved]
  - Weight increased [Recovered/Resolved]
  - White blood cell count decreased [Recovered/Resolved]
  - Blood pressure diastolic decreased [Recovered/Resolved]
  - Drug level below therapeutic [Recovered/Resolved]
  - Therapeutic product effect incomplete [Recovered/Resolved]
  - Drug level increased [Recovered/Resolved]
  - Intentional product use issue [Recovered/Resolved]
  - Incorrect dose administered [Recovered/Resolved]
  - Inappropriate schedule of product administration [Recovered/Resolved]
  - Off label use [Recovered/Resolved]
